FAERS Safety Report 19550964 (Version 2)
Quarter: 2021Q3

REPORT INFORMATION
  Report Type: Report from Study
  Country: US (occurrence: US)
  Receive Date: 20210715
  Receipt Date: 20210715
  Transmission Date: 20211014
  Serious: Yes (Other)
  Sender: FDA-Public Use
  Company Number: NVSC2021US137701

PATIENT
  Sex: Male

DRUGS (2)
  1. ENTRESTO [Suspect]
     Active Substance: SACUBITRIL\VALSARTAN
     Indication: CARDIAC FAILURE CONGESTIVE
     Dosage: UNK UNK, BID
     Route: 048
     Dates: start: 20210519
  2. TORSEMIDE. [Suspect]
     Active Substance: TORSEMIDE
     Indication: FLUID RETENTION
     Dosage: UNK UNK, UNKNOWN
     Route: 065

REACTIONS (2)
  - Cardiac failure [Unknown]
  - Hypotension [Unknown]
